FAERS Safety Report 8457688-8 (Version None)
Quarter: 2012Q2

REPORT INFORMATION
  Report Type: 
  Country: None (occurrence: None)
  Receive Date: 20120618
  Receipt Date: 20120618
  Transmission Date: 20120825
  Serious: No
  Sender: FDA-Public Use
  Company Number: None

PATIENT
  Age: 64 Year
  Sex: Female
  Weight: 81.6475 kg

DRUGS (1)
  1. QVAR 40 [Suspect]
     Indication: ASTHMA
     Dosage: 2PUFFS 2XPER DAY INHAL
     Route: 055
     Dates: start: 20120401, end: 20120615

REACTIONS (2)
  - MUSCLE SPASMS [None]
  - MIDDLE INSOMNIA [None]
